FAERS Safety Report 14424330 (Version 1)
Quarter: 2018Q1

REPORT INFORMATION
  Report Type: Spontaneous
  Country: US (occurrence: US)
  Receive Date: 20180123
  Receipt Date: 20180123
  Transmission Date: 20180509
  Serious: No
  Sender: FDA-Public Use
  Company Number: US-PFIZER INC-2018028588

PATIENT
  Sex: Female

DRUGS (4)
  1. TRAMADOL. [Concomitant]
     Active Substance: TRAMADOL
     Indication: NEUROPATHY PERIPHERAL
     Dosage: 100MG TIME RELEASE THREE TIMES DAILY
     Dates: start: 2016, end: 201712
  2. GABAPENTIN. [Suspect]
     Active Substance: GABAPENTIN
     Indication: NERVE INJURY
     Dosage: 800MG TABLET, 1 TABLET4 TIMES DAILY
  3. VALIUM [Concomitant]
     Active Substance: DIAZEPAM
     Indication: NEUROPATHY PERIPHERAL
     Dosage: 10MG FOUR TIMES DAILY
     Dates: start: 2016, end: 201712
  4. NORCO [Concomitant]
     Active Substance: ACETAMINOPHEN\HYDROCODONE BITARTRATE
     Indication: PAIN
     Dosage: 7.5MG FOUR TIMES DAILY
     Dates: end: 201712

REACTIONS (2)
  - Product use in unapproved indication [Unknown]
  - Hallucination [Recovered/Resolved]

NARRATIVE: CASE EVENT DATE: 2008
